FAERS Safety Report 9542610 (Version 1)
Quarter: 2013Q3

REPORT INFORMATION
  Report Type: Spontaneous
  Country: US (occurrence: US)
  Receive Date: 20130923
  Receipt Date: 20130923
  Transmission Date: 20140515
  Serious: No
  Sender: FDA-Public Use
  Company Number: US-PFIZER INC-2013271123

PATIENT
  Sex: Female
  Weight: 118 kg

DRUGS (3)
  1. ZOLOFT [Suspect]
     Indication: NERVE INJURY
     Dosage: 100 MG, DAILY
     Dates: start: 2006, end: 2011
  2. NICOTROL INHALER [Suspect]
     Dosage: UNK
     Dates: end: 2011
  3. CALAN [Suspect]
     Dosage: UNK
     Dates: end: 2011

REACTIONS (2)
  - Hearing impaired [Unknown]
  - Off label use [Recovered/Resolved]
